FAERS Safety Report 16710792 (Version 1)
Quarter: 2019Q3

REPORT INFORMATION
  Report Type: Spontaneous
  Country: US (occurrence: US)
  Receive Date: 20190816
  Receipt Date: 20190816
  Transmission Date: 20191004
  Serious: No
  Sender: FDA-Public Use
  Company Number: US-009507513-1908USA006493

PATIENT
  Age: 58 Year
  Sex: Male

DRUGS (4)
  1. DABRAFENIB [Concomitant]
     Active Substance: DABRAFENIB
     Indication: ANAPLASTIC THYROID CANCER
  2. KEYTRUDA [Suspect]
     Active Substance: PEMBROLIZUMAB
     Indication: ANAPLASTIC THYROID CANCER
     Dosage: 200 MILLIGRAM, EVERY 3 WEEKS
  3. KEYTRUDA [Suspect]
     Active Substance: PEMBROLIZUMAB
     Indication: THYROID CANCER METASTATIC
  4. TRAMETINIB [Concomitant]
     Active Substance: TRAMETINIB
     Indication: ANAPLASTIC THYROID CANCER
     Dosage: UNK

REACTIONS (1)
  - Product use in unapproved indication [Unknown]
